FAERS Safety Report 17467684 (Version 8)
Quarter: 2023Q1

REPORT INFORMATION
  Report Type: Spontaneous
  Country: IN (occurrence: IN)
  Receive Date: 20200227
  Receipt Date: 20230112
  Transmission Date: 20230418
  Serious: Yes (Other)
  Sender: FDA-Public Use
  Company Number: IN-PFIZER INC-2018259293

PATIENT
  Age: 48 Year
  Sex: Female

DRUGS (4)
  1. PALBOCICLIB [Suspect]
     Active Substance: PALBOCICLIB
     Indication: Breast cancer metastatic
     Dosage: 125 MG, 1X/DAY
     Route: 048
     Dates: start: 20171128
  2. PALBOCICLIB [Suspect]
     Active Substance: PALBOCICLIB
     Dosage: 100 MG, 1X/DAY, 3 WEEKS ON AND ONE WEEK OFF
     Route: 048
  3. PALBOCICLIB [Suspect]
     Active Substance: PALBOCICLIB
     Dosage: 125 MG, 1X/DAY, 3 WEEKS ON AND 1 WEEK OFF
     Route: 048
     Dates: start: 20210705
  4. LETROZOLE [Concomitant]
     Active Substance: LETROZOLE
     Dosage: 2.5 MG, 1X/DAY

REACTIONS (6)
  - Type 2 diabetes mellitus [Unknown]
  - Myelosuppression [Unknown]
  - Anaemia [Unknown]
  - Fatigue [Unknown]
  - Hypertension [Unknown]
  - Immune system disorder [Unknown]
